FAERS Safety Report 20371272 (Version 1)
Quarter: 2022Q1

REPORT INFORMATION
  Report Type: Report from Study
  Country: ZA (occurrence: ZA)
  Receive Date: 20220124
  Receipt Date: 20220124
  Transmission Date: 20220423
  Serious: Yes (Hospitalization)
  Sender: FDA-Public Use
  Company Number: ZA-JNJFOC-20220124974

PATIENT
  Age: 56 Year
  Sex: Female
  Weight: 68 kg

DRUGS (6)
  1. ESKETAMINE [Suspect]
     Active Substance: ESKETAMINE
     Indication: Depression
     Dates: start: 20190919, end: 20220107
  2. LEVOTHYROXINE [Concomitant]
     Active Substance: LEVOTHYROXINE
     Indication: Hypothyroidism
     Route: 048
     Dates: start: 2010
  3. ESTRADIOL [Concomitant]
     Active Substance: ESTRADIOL
     Indication: Menopause
     Dosage: DATE NOT LEGIBLE
     Route: 061
     Dates: start: 2019
  4. ATIVAN [Concomitant]
     Active Substance: LORAZEPAM
     Indication: Anxiety
     Dosage: DATE NOT LEGIBLE
     Route: 048
     Dates: start: 2019
  5. ATIVAN [Concomitant]
     Active Substance: LORAZEPAM
     Indication: Panic attack
     Dosage: STAT
     Route: 048
     Dates: start: 20200422, end: 20200422
  6. PREMARIN [Concomitant]
     Active Substance: ESTROGENS, CONJUGATED
     Indication: Menopause
     Route: 048
     Dates: start: 20200922

REACTIONS (1)
  - Gastroenteritis salmonella [Recovering/Resolving]

NARRATIVE: CASE EVENT DATE: 20220113
